FAERS Safety Report 21468950 (Version 1)
Quarter: 2022Q4

REPORT INFORMATION
  Report Type: Spontaneous
  Country: FR (occurrence: FR)
  Receive Date: 20221018
  Receipt Date: 20221018
  Transmission Date: 20230113
  Serious: Yes (Hospitalization, Other)
  Sender: FDA-Public Use
  Company Number: FR-AFSSAPS-GR20222207

PATIENT
  Age: 22 Year
  Sex: Female
  Weight: 46.5 kg

DRUGS (2)
  1. ALPRAZOLAM [Suspect]
     Active Substance: ALPRAZOLAM
     Indication: Intentional overdose
     Dosage: 9 DOSAGE FORM
     Route: 048
     Dates: start: 20220918, end: 20220918
  2. VIMPAT [Suspect]
     Active Substance: LACOSAMIDE
     Indication: Intentional overdose
     Dosage: 10 DOSAGE FORM
     Route: 048
     Dates: start: 20220918, end: 20220918

REACTIONS (3)
  - Poisoning deliberate [Recovered/Resolved]
  - Coma [Recovered/Resolved]
  - Respiratory alkalosis [Recovered/Resolved]

NARRATIVE: CASE EVENT DATE: 20220918
